FAERS Safety Report 5364479-3 (Version None)
Quarter: 2007Q2

REPORT INFORMATION
  Report Type: 
  Country: None (occurrence: None)
  Receive Date: 20070530
  Receipt Date: 20070116
  Transmission Date: 20071010
  Serious: No
  Sender: FDA-Public Use
  Company Number: 2007PV028512

PATIENT
  Age: 68 Year
  Sex: Male
  Weight: 107.9561 kg

DRUGS (7)
  1. BYETTA [Suspect]
     Indication: DIABETES MELLITUS NON-INSULIN-DEPENDENT
     Dosage: 10 MCG;BID;SC, 10 MCG;BID;SC, 5 MCG;BID;SC
     Route: 058
     Dates: start: 20061101, end: 20061201
  2. BYETTA [Suspect]
     Indication: DIABETES MELLITUS NON-INSULIN-DEPENDENT
     Dosage: 10 MCG;BID;SC, 10 MCG;BID;SC, 5 MCG;BID;SC
     Route: 058
     Dates: start: 20061201, end: 20061225
  3. BYETTA [Suspect]
     Indication: DIABETES MELLITUS NON-INSULIN-DEPENDENT
     Dosage: 10 MCG;BID;SC, 10 MCG;BID;SC, 5 MCG;BID;SC
     Route: 058
     Dates: start: 20070117
  4. METFORMIN HCL [Concomitant]
  5. AMARYL [Concomitant]
  6. ACTOS [Concomitant]
  7. MOTRIN [Concomitant]

REACTIONS (4)
  - ABDOMINAL PAIN UPPER [None]
  - BLOOD GLUCOSE INCREASED [None]
  - DYSURIA [None]
  - INJECTION SITE BRUISING [None]
